FAERS Safety Report 9319369 (Version 1)
Quarter: 2013Q2

REPORT INFORMATION
  Report Type: Spontaneous
  Country: DE (occurrence: DE)
  Receive Date: 20130530
  Receipt Date: 20130530
  Transmission Date: 20140414
  Serious: Yes (Congenital Anomaly)
  Sender: FDA-Public Use
  Company Number: DE-ELI_LILLY_AND_COMPANY-DE201305006042

PATIENT
  Sex: Female
  Weight: 2.62 kg

DRUGS (3)
  1. CYMBALTA [Suspect]
     Indication: PAIN
     Dosage: 60 MG, QD
     Route: 064
  2. CENTRUM                            /00554501/ [Concomitant]
     Indication: PROPHYLAXIS OF NEURAL TUBE DEFECT
     Dosage: UNK MG, UNK
     Route: 064
  3. FOLIC ACID [Concomitant]

REACTIONS (2)
  - Cleft palate [Unknown]
  - Foetal exposure during pregnancy [Recovered/Resolved]
